FAERS Safety Report 5356571-4 (Version None)
Quarter: 2007Q2

REPORT INFORMATION
  Report Type: 
  Country: None (occurrence: None)
  Receive Date: 20070613
  Receipt Date: 20070605
  Transmission Date: 20071010
  Serious: Yes (Disabling)
  Sender: FDA-Public Use
  Company Number: PHBS2007CO09143

PATIENT
  Age: 31 Year
  Sex: Female

DRUGS (3)
  1. TRILEPTAL [Suspect]
     Indication: BIPOLAR DISORDER
     Dosage: 600 MG/DAY
     Route: 048
     Dates: start: 20061201, end: 20070201
  2. CLONAZEPAM [Concomitant]
  3. VALPROATE MAGNESIUM [Concomitant]

REACTIONS (3)
  - INFLAMMATION [None]
  - MANIA [None]
  - SYSTEMIC LUPUS ERYTHEMATOSUS RASH [None]
